FAERS Safety Report 8333140-5 (Version None)
Quarter: 2012Q2

REPORT INFORMATION
  Report Type: 
  Country: None (occurrence: None)
  Receive Date: 20120503
  Receipt Date: 20120427
  Transmission Date: 20120825
  Serious: Yes (Hospitalization, Congenital Anomaly, Other)
  Sender: FDA-Public Use
  Company Number: DE-PFIZER INC-2012104416

PATIENT
  Sex: Female
  Weight: 3.565 kg

DRUGS (2)
  1. SERTRALINE HYDROCHLORIDE [Suspect]
     Indication: DEPRESSION
     Dosage: 75 MG, DAILY
     Route: 064
  2. TRIMIPRAMINE MALEATE [Suspect]
     Indication: DEPRESSION
     Dosage: 75 MG, DAILY
     Route: 064

REACTIONS (7)
  - MECONIUM IN AMNIOTIC FLUID [None]
  - APGAR SCORE LOW [None]
  - CONGENITAL TRICUSPID VALVE INCOMPETENCE [None]
  - ATRIAL SEPTAL DEFECT [None]
  - MATERNAL EXPOSURE TIMING UNSPECIFIED [None]
  - NEONATAL RESPIRATORY DISTRESS SYNDROME [None]
  - INFECTION [None]
